FAERS Safety Report 19610448 (Version 1)
Quarter: 2021Q3

REPORT INFORMATION
  Report Type: Spontaneous
  Country: US (occurrence: US)
  Receive Date: 20210726
  Receipt Date: 20210726
  Transmission Date: 20211014
  Serious: No
  Sender: FDA-Public Use
  Company Number: US-PFIZER INC-2021660694

PATIENT
  Age: 87 Year
  Sex: Male

DRUGS (3)
  1. RETACRIT [Concomitant]
     Active Substance: EPOETIN ALFA-EPBX
     Indication: REFRACTORY CYTOPENIA WITH UNILINEAGE DYSPLASIA
     Dosage: 40000 UN/ML
  2. NIVESTYM [Suspect]
     Active Substance: FILGRASTIM-AAFI
     Indication: APLASTIC ANAEMIA
     Dosage: 300MCG/0.5ML
  3. RETACRIT [Concomitant]
     Active Substance: EPOETIN ALFA-EPBX
     Indication: BLAST CELL COUNT INCREASED

REACTIONS (2)
  - Feeling abnormal [Unknown]
  - Off label use [Unknown]
